FAERS Safety Report 5157094-8 (Version None)
Quarter: 2006Q4

REPORT INFORMATION
  Report Type: 
  Country: None (occurrence: None)
  Receive Date: 20061127
  Receipt Date: 20060502
  Transmission Date: 20070319
  Serious: Yes (Hospitalization)
  Sender: FDA-Public Use
  Company Number: US-ELI_LILLY_AND_COMPANY-US200608005638

PATIENT
  Age: 53 Year
  Sex: Female
  Weight: 108.84 kg

DRUGS (1)
  1. ZYPREXA [Suspect]
     Dosage: UNK, UNK
     Dates: start: 19980101

REACTIONS (3)
  - BLOOD CHOLESTEROL ABNORMAL [None]
  - CATHETERISATION CARDIAC [None]
  - DIABETES MELLITUS [None]
